FAERS Safety Report 10044098 (Version 2)
Quarter: 2014Q1

REPORT INFORMATION
  Report Type: Report from Study
  Country: US (occurrence: US)
  Receive Date: 20140328
  Receipt Date: 20140328
  Transmission Date: 20141002
  Serious: No
  Sender: FDA-Public Use
  Company Number: US-MYLANLABS-2014S1000297

PATIENT
  Age: 67 Year
  Sex: Female
  Weight: 72.58 kg

DRUGS (7)
  1. EMSAM (SELEGILINE TRANSDERMAL SYSTEM) [Suspect]
     Indication: MAJOR DEPRESSION
     Route: 062
     Dates: start: 2012, end: 2012
  2. EMSAM (SELEGILINE TRANSDERMAL SYSTEM) [Suspect]
     Indication: MAJOR DEPRESSION
     Route: 062
     Dates: start: 2012
  3. KLONOPIN [Concomitant]
     Indication: GENERALISED ANXIETY DISORDER
     Route: 048
     Dates: start: 2009
  4. ZOLPIDEM [Concomitant]
     Indication: INSOMNIA
     Route: 048
  5. ADVIL PM /05810501/ [Concomitant]
     Indication: INSOMNIA
     Route: 048
  6. IBUPROFEN [Concomitant]
     Indication: ARTHRITIS
  7. MULTIVITAMIN [Concomitant]

REACTIONS (9)
  - Drug effect decreased [Recovered/Resolved]
  - Depression [Recovered/Resolved]
  - Depressed mood [Recovered/Resolved]
  - Irritability [Recovered/Resolved]
  - Abdominal pain [Recovered/Resolved]
  - Malaise [Recovered/Resolved]
  - Influenza like illness [Recovered/Resolved]
  - Wrong technique in drug usage process [Not Recovered/Not Resolved]
  - Incorrect dose administered [Not Recovered/Not Resolved]
